FAERS Safety Report 17540021 (Version 3)
Quarter: 2020Q2

REPORT INFORMATION
  Report Type: Spontaneous
  Country: US (occurrence: US)
  Receive Date: 20200313
  Receipt Date: 20200605
  Transmission Date: 20200713
  Serious: No
  Sender: FDA-Public Use
  Company Number: US-SA-2020SA064433

PATIENT

DRUGS (1)
  1. DUPILUMAB [Suspect]
     Active Substance: DUPILUMAB
     Indication: ASTHMA
     Dosage: 300 MG, QOW
     Route: 058
     Dates: start: 20190805

REACTIONS (6)
  - Skin exfoliation [Unknown]
  - Urticaria [Unknown]
  - Product use issue [Unknown]
  - Eczema [Unknown]
  - Mouth ulceration [Unknown]
  - Pruritus [Unknown]

NARRATIVE: CASE EVENT DATE: 20190805
